FAERS Safety Report 17585871 (Version 8)
Quarter: 2025Q1

REPORT INFORMATION
  Report Type: Spontaneous
  Country: US (occurrence: US)
  Receive Date: 20200326
  Receipt Date: 20250326
  Transmission Date: 20250408
  Serious: No
  Sender: PFIZER
  Company Number: US-PFIZER INC-2020125095

PATIENT
  Age: 71 Year
  Sex: Female

DRUGS (3)
  1. IBRANCE [Suspect]
     Active Substance: PALBOCICLIB
     Indication: Breast cancer female
  2. IBRANCE [Suspect]
     Active Substance: PALBOCICLIB
     Route: 048
  3. IBRANCE [Suspect]
     Active Substance: PALBOCICLIB
     Route: 048

REACTIONS (2)
  - Depressed mood [Unknown]
  - Off label use [Unknown]
